FAERS Safety Report 12283823 (Version 1)
Quarter: 2016Q2

REPORT INFORMATION
  Report Type: Spontaneous
  Country: US (occurrence: US)
  Receive Date: 20160419
  Receipt Date: 20160419
  Transmission Date: 20160815
  Serious: No
  Sender: FDA-Public Use
  Company Number: US-BANPHARM-20153900

PATIENT
  Age: 82 Year
  Weight: 63.05 kg

DRUGS (2)
  1. URSODIOL. [Concomitant]
     Active Substance: URSODIOL
     Indication: PAIN IN EXTREMITY
  2. ALEVE [Suspect]
     Active Substance: NAPROXEN SODIUM
     Dosage: 1 DF, PRN,
     Route: 048

REACTIONS (3)
  - Dyspepsia [Recovered/Resolved]
  - Off label use [Unknown]
  - Extra dose administered [Unknown]

NARRATIVE: CASE EVENT DATE: 20150506
